FAERS Safety Report 5869986-2 (Version None)
Quarter: 2008Q3

REPORT INFORMATION
  Report Type: 
  Country: None (occurrence: None)
  Receive Date: 20080904
  Receipt Date: 20080904
  Transmission Date: 20090109
  Serious: Yes (Hospitalization)
  Sender: FDA-Public Use
  Company Number: PHEH1996US02720

PATIENT
  Sex: Female
  Weight: 91.3 kg

DRUGS (4)
  1. NEORAL [Suspect]
     Route: 048
     Dates: start: 19950114
  2. PREDNISONE TAB [Concomitant]
     Dosage: UNSPECIFIED
     Route: 065
  3. IMURAN [Concomitant]
     Dosage: UNSPECIFIED
     Route: 065
  4. SOLU-MEDROL [Concomitant]
     Dosage: UNSPECIFIED
     Route: 065

REACTIONS (3)
  - BLOOD CREATININE INCREASED [None]
  - DRUG LEVEL INCREASED [None]
  - DRUG TOXICITY [None]
